FAERS Safety Report 7266743-X (Version None)
Quarter: 2011Q1

REPORT INFORMATION
  Report Type: 
  Country: None (occurrence: None)
  Receive Date: 20110201
  Receipt Date: 20110121
  Transmission Date: 20110831
  Serious: No
  Sender: FDA-Public Use
  Company Number: US-BIOGENIDEC-2011BI002661

PATIENT
  Age: 41 Year
  Sex: Female

DRUGS (1)
  1. TYSABRI [Suspect]
     Indication: MULTIPLE SCLEROSIS
     Route: 042
     Dates: start: 20070101

REACTIONS (11)
  - NERVE ROOT COMPRESSION [None]
  - IRRITABLE BOWEL SYNDROME [None]
  - COGNITIVE DISORDER [None]
  - RHINORRHOEA [None]
  - NAUSEA [None]
  - FATIGUE [None]
  - SLEEP DISORDER [None]
  - SWOLLEN TONGUE [None]
  - DRY MOUTH [None]
  - MIGRAINE [None]
  - THROAT IRRITATION [None]
